FAERS Safety Report 9723101 (Version 1)
Quarter: 2013Q4

REPORT INFORMATION
  Report Type: Spontaneous
  Country: US (occurrence: None)
  Receive Date: 20131126
  Receipt Date: 20131126
  Transmission Date: 20140711
  Serious: Yes (Hospitalization)
  Sender: FDA-Public Use
  Company Number: SP07246

PATIENT
  Sex: Female

DRUGS (6)
  1. APRISO [Suspect]
  2. LINZESS [Suspect]
  3. DIGOXIN [Concomitant]
  4. PROBIOTOICS [Concomitant]
  5. METOPROLOL [Concomitant]
  6. TYLENOL [Concomitant]

REACTIONS (10)
  - Intestinal obstruction [None]
  - Drug ineffective [None]
  - Intestinal stenosis [None]
  - Diverticulitis [None]
  - Inflammation [None]
  - Abnormal dreams [None]
  - Lethargy [None]
  - Frequent bowel movements [None]
  - Constipation [None]
  - Diarrhoea [None]
